FAERS Safety Report 7685295-3 (Version None)
Quarter: 2011Q3

REPORT INFORMATION
  Report Type: 
  Country: None (occurrence: None)
  Receive Date: 20110816
  Receipt Date: 20110811
  Transmission Date: 20111222
  Serious: Yes (Hospitalization)
  Sender: FDA-Public Use
  Company Number: JP-SANOFI-AVENTIS-2011SA038908

PATIENT
  Age: 65 Year
  Sex: Male
  Weight: 65 kg

DRUGS (8)
  1. DEPAS [Concomitant]
     Indication: INSOMNIA
  2. MICARDIS [Concomitant]
     Indication: HYPERTENSION
     Route: 048
  3. TEGRETOL [Concomitant]
     Route: 048
  4. AMARYL [Concomitant]
     Indication: DIABETES MELLITUS
     Route: 048
  5. PLAVIX [Concomitant]
     Indication: CEREBRAL INFARCTION
     Route: 048
     Dates: start: 20060101
  6. LANSOPRAZOLE [Concomitant]
     Indication: GASTRITIS
     Route: 048
  7. RILUTEK [Suspect]
     Indication: AMYOTROPHIC LATERAL SCLEROSIS
     Route: 048
     Dates: start: 20110530, end: 20110620
  8. NORVASC [Concomitant]
     Indication: HYPERTENSION
     Route: 048

REACTIONS (3)
  - HEPATIC FUNCTION ABNORMAL [None]
  - LIVER INJURY [None]
  - LUNG DISORDER [None]
